FAERS Safety Report 15334908 (Version 1)
Quarter: 2018Q3

REPORT INFORMATION
  Report Type: Spontaneous
  Country: NL (occurrence: NL)
  Receive Date: 20180830
  Receipt Date: 20180830
  Transmission Date: 20181010
  Serious: Yes (Hospitalization, Other)
  Sender: FDA-Public Use
  Company Number: NL-JUBILANT CADISTA PHARMACEUTICALS-2018JUB00355

PATIENT
  Age: 64 Year
  Sex: Female

DRUGS (1)
  1. METHYLPREDNISOLONE. [Suspect]
     Active Substance: METHYLPREDNISOLONE
     Indication: DERMATOMYOSITIS
     Dosage: 64 MG, 1X/DAY
     Route: 048

REACTIONS (3)
  - Klebsiella infection [Recovered/Resolved]
  - Pneumothorax [Recovered/Resolved]
  - Diabetes mellitus [Recovered/Resolved]
